FAERS Safety Report 10185257 (Version 1)
Quarter: 2014Q2

REPORT INFORMATION
  Report Type: Spontaneous
  Country: GB (occurrence: GB)
  Receive Date: 20140521
  Receipt Date: 20140521
  Transmission Date: 20141212
  Serious: No
  Sender: FDA-Public Use
  Company Number: GB-JNJFOC-20140505283

PATIENT
  Age: 12 Year
  Sex: Male

DRUGS (2)
  1. FENTANYL [Suspect]
     Indication: ABDOMINAL PAIN
     Route: 062
  2. MORPHINE [Suspect]
     Indication: ABDOMINAL PAIN
     Route: 065

REACTIONS (1)
  - Abdominal pain [Unknown]
